FAERS Safety Report 11865174 (Version 5)
Quarter: 2016Q2

REPORT INFORMATION
  Report Type: Spontaneous
  Country: JP (occurrence: JP)
  Receive Date: 20151223
  Receipt Date: 20160406
  Transmission Date: 20160815
  Serious: Yes (Hospitalization, Other)
  Sender: FDA-Public Use
  Company Number: JP-GILEAD-2015-0177542AA

PATIENT
  Age: 79 Year
  Sex: Male

DRUGS (11)
  1. ARTIST [Concomitant]
     Active Substance: CARVEDILOL
     Dosage: 25 MG, BID
     Route: 065
  2. FEBURIC [Concomitant]
     Active Substance: FEBUXOSTAT
     Dosage: 20 MG, QD
     Route: 065
  3. PLAVIX [Concomitant]
     Active Substance: CLOPIDOGREL BISULFATE
     Dosage: UNK, QD
     Route: 065
  4. CRESTOR [Concomitant]
     Active Substance: ROSUVASTATIN CALCIUM
     Dosage: 25 MG, QD
     Route: 065
  5. EQUA [Concomitant]
     Active Substance: VILDAGLIPTIN
     Dosage: 50 MG, QD
     Route: 065
  6. RABEPAZOLE [Concomitant]
     Dosage: 10 MG, QD
     Route: 065
  7. BROTIZOLAM [Concomitant]
     Active Substance: BROTIZOLAM
     Dosage: 25 MG, BEFORE BED
     Route: 048
  8. HARVONI [Suspect]
     Active Substance: LEDIPASVIR\SOFOSBUVIR
     Indication: CHRONIC HEPATITIS C
     Dosage: 1 DF, QOD
     Route: 048
     Dates: start: 20150909, end: 20151130
  9. BAYASPIRIN [Concomitant]
     Active Substance: ASPIRIN
     Dosage: UNK, QD
     Route: 065
  10. DIOVAN [Concomitant]
     Active Substance: VALSARTAN
     Dosage: 80 MG, QD
     Route: 065
  11. KREMEZIN [Concomitant]
     Active Substance: ACTIVATED CHARCOAL
     Dosage: 2 G, BID
     Route: 065
     Dates: start: 20150924

REACTIONS (2)
  - Off label use [Not Recovered/Not Resolved]
  - Renal impairment [Not Recovered/Not Resolved]
